FAERS Safety Report 17935115 (Version 2)
Quarter: 2021Q2

REPORT INFORMATION
  Report Type: Spontaneous
  Country: US (occurrence: US)
  Receive Date: 20200624
  Receipt Date: 20210402
  Transmission Date: 20210717
  Serious: No
  Sender: FDA-Public Use
  Company Number: US-PFIZER INC-2020243123

PATIENT
  Age: 49 Year
  Sex: Female

DRUGS (1)
  1. XELJANZ XR [Suspect]
     Active Substance: TOFACITINIB CITRATE
     Indication: RHEUMATOID ARTHRITIS
     Dosage: 11 MG

REACTIONS (9)
  - Discomfort [Unknown]
  - Musculoskeletal disorder [Unknown]
  - Cardiovascular disorder [Unknown]
  - Immune system disorder [Unknown]
  - Dysstasia [Unknown]
  - Social anxiety disorder [Unknown]
  - Oedema peripheral [Unknown]
  - Mental disorder [Unknown]
  - Gait disturbance [Unknown]
